FAERS Safety Report 6005625-8 (Version None)
Quarter: 2008Q4

REPORT INFORMATION
  Report Type: 
  Country: None (occurrence: None)
  Receive Date: 20081216
  Receipt Date: 20081216
  Transmission Date: 20090506
  Serious: Yes (Death)
  Sender: FDA-Public Use
  Company Number: None

PATIENT
  Age: 26 Year
  Sex: Male
  Weight: 79.3795 kg

DRUGS (2)
  1. PAXIL [Suspect]
     Indication: ANXIETY
     Dosage: DAILY PO FIRST MONTH TAKEN; RAN OUT
     Route: 048
     Dates: start: 20081104, end: 20081204
  2. PAXIL [Suspect]
     Indication: DEPRESSION
     Dosage: DAILY PO FIRST MONTH TAKEN; RAN OUT
     Route: 048
     Dates: start: 20081104, end: 20081204

REACTIONS (4)
  - COMPLETED SUICIDE [None]
  - GUN SHOT WOUND [None]
  - HEAD INJURY [None]
  - PARANOIA [None]
